FAERS Safety Report 25613876 (Version 1)
Quarter: 2025Q3

REPORT INFORMATION
  Report Type: Spontaneous
  Country: TH (occurrence: TH)
  Receive Date: 20250728
  Receipt Date: 20250728
  Transmission Date: 20251020
  Serious: Yes (Other)
  Sender: ELI LILLY AND COMPANY
  Company Number: TH-ELI_LILLY_AND_COMPANY-TH202507018575

PATIENT
  Age: 78 Year

DRUGS (1)
  1. CYRAMZA [Suspect]
     Active Substance: RAMUCIRUMAB
     Indication: Gastric cancer
     Route: 065

REACTIONS (2)
  - Ulcer haemorrhage [Unknown]
  - Diarrhoea [Unknown]
